FAERS Safety Report 26211638 (Version 1)
Quarter: 2025Q4

REPORT INFORMATION
  Report Type: Spontaneous
  Country: CN (occurrence: CN)
  Receive Date: 20251230
  Receipt Date: 20251230
  Transmission Date: 20260118
  Serious: Yes (Other)
  Sender: MERCK SHARP & DOHME LLC
  Company Number: CN-009507513-2364582

PATIENT
  Age: 53 Year
  Sex: Male

DRUGS (2)
  1. TEMOZOLOMIDE [Suspect]
     Active Substance: TEMOZOLOMIDE
     Indication: Glioblastoma
     Route: 048
  2. TEMOZOLOMIDE [Suspect]
     Active Substance: TEMOZOLOMIDE
     Indication: Glioblastoma
     Dosage: TIME INTERVAL: CYCLICAL: 150 TO 200 MG PER SQUARE METER FOR 5 DAYS DURING EACH 28-DAY CYCLE, SIX ...
     Route: 048

REACTIONS (2)
  - Demyelination [Unknown]
  - Central nervous system inflammation [Unknown]
